FAERS Safety Report 19509993 (Version 7)
Quarter: 2023Q1

REPORT INFORMATION
  Report Type: Report from Study
  Country: US (occurrence: US)
  Receive Date: 20210709
  Receipt Date: 20230313
  Transmission Date: 20230418
  Serious: Yes (Hospitalization, Other)
  Sender: FDA-Public Use
  Company Number: US-BOEHRINGERINGELHEIM-2021-BI-113997

PATIENT
  Age: 69 Year
  Sex: Female

DRUGS (1)
  1. OFEV [Suspect]
     Active Substance: NINTEDANIB
     Indication: Idiopathic pulmonary fibrosis
     Dosage: ADDED LOT NO : 104545
     Route: 048
     Dates: start: 20201016

REACTIONS (15)
  - Pneumonia [Unknown]
  - Gallbladder operation [Recovering/Resolving]
  - Loss of consciousness [Unknown]
  - Fall [Unknown]
  - Respiratory tract congestion [Unknown]
  - Blood pressure decreased [Unknown]
  - Kidney infection [Unknown]
  - Syncope [Unknown]
  - Asthenia [Unknown]
  - Diarrhoea [Not Recovered/Not Resolved]
  - Vomiting [Not Recovered/Not Resolved]
  - Constipation [Not Recovered/Not Resolved]
  - Weight decreased [Recovered/Resolved]
  - Sinus congestion [Unknown]
  - Pneumonia viral [Unknown]

NARRATIVE: CASE EVENT DATE: 20210801
